FAERS Safety Report 7318935-9 (Version None)
Quarter: 2011Q1

REPORT INFORMATION
  Report Type: 
  Country: None (occurrence: None)
  Receive Date: 20110228
  Receipt Date: 20110222
  Transmission Date: 20110831
  Serious: Yes (Death)
  Sender: FDA-Public Use
  Company Number: ES-NOVOPROD-322121

PATIENT
  Sex: Female
  Weight: 69.5 kg

DRUGS (7)
  1. BISOPROLOL FUMARATE [Concomitant]
     Indication: HYPERTENSION
     Dosage: 5 MG, QD
     Route: 048
     Dates: start: 20080101
  2. METFORMINE [Concomitant]
     Indication: DIABETES MELLITUS
     Dosage: 1700 MG, QD
     Route: 048
     Dates: start: 20070101
  3. XERISTAR [Concomitant]
     Indication: DEPRESSION
     Dosage: 30 UG, QD
     Route: 048
     Dates: start: 20080101
  4. ADIRO [Concomitant]
     Indication: PROPHYLAXIS
     Dosage: 100 MG, QD
     Route: 048
     Dates: start: 20100811
  5. INSULIN DETEMIR FLEXPEN [Suspect]
     Indication: TYPE 2 DIABETES MELLITUS
     Dosage: 22 U/ML, QD
     Route: 058
     Dates: start: 20101210
  6. OMEPRAZOLE [Concomitant]
     Indication: PROPHYLAXIS
     Dosage: 20 MG, QD
     Route: 048
     Dates: start: 20090101
  7. AMILORID/HCT [Concomitant]
     Indication: HYPERTENSION
     Dosage: 2.5/25 MG, QD
     Route: 048
     Dates: start: 20080101

REACTIONS (1)
  - CONGESTIVE CARDIOMYOPATHY [None]
